FAERS Safety Report 5264121-6 (Version None)
Quarter: 2007Q1

REPORT INFORMATION
  Report Type: 
  Country: None (occurrence: None)
  Receive Date: 20070309
  Receipt Date: 20070301
  Transmission Date: 20070707
  Serious: Yes (Death, Hospitalization)
  Sender: FDA-Public Use
  Company Number: 430001E07BEL

PATIENT
  Age: 69 Year
  Sex: Male

DRUGS (3)
  1. NOVANTRONE [Suspect]
     Dosage: 15.4 MG, UNKNOWN
     Dates: start: 20070206, end: 20070210
  2. CYTARABINE [Suspect]
     Dosage: 220 MG, UNKNOWN
     Dates: start: 20070206, end: 20070212
  3. ETOPOSIDE [Suspect]
     Dosage: 220 MG, UNKNOWN
     Dates: start: 20070206, end: 20070208

REACTIONS (4)
  - CLOSTRIDIUM DIFFICILE COLITIS [None]
  - ENTEROCOLITIS [None]
  - NEUTROPENIA [None]
  - SEPTIC SHOCK [None]
